FAERS Safety Report 7499812-X (Version None)
Quarter: 2011Q2

REPORT INFORMATION
  Report Type: 
  Country: None (occurrence: None)
  Receive Date: 20110524
  Receipt Date: 20110511
  Transmission Date: 20111010
  Serious: Yes (Disabling)
  Sender: FDA-Public Use
  Company Number: JP-BAYER-2010-006106

PATIENT
  Age: 75 Year
  Sex: Male

DRUGS (12)
  1. VOGLIBOSE [Concomitant]
     Indication: DIABETES MELLITUS
     Dosage: 0.2 MG, TID
     Route: 048
     Dates: start: 20101221
  2. GLIMEPIRIDE [Concomitant]
     Indication: DIABETES MELLITUS
     Dosage: UNK
     Route: 048
  3. LANSOPRAZOLE [Concomitant]
     Indication: HAEMORRHAGE PROPHYLAXIS
     Dosage: 15 MG, QD
     Route: 048
  4. LIVACT [Concomitant]
     Dosage: 1 DF, TID
     Route: 048
     Dates: start: 20101220
  5. LOSARTAN POTASSIUM [Concomitant]
     Indication: HAEMORRHAGE PROPHYLAXIS
     Dosage: 25 MG, QD
     Route: 048
  6. UFT [Concomitant]
     Dosage: 100 MG, TID
     Route: 048
     Dates: start: 20101215
  7. SHAKUYAKUKANZOUTOU [Concomitant]
     Dosage: 1 DF, TID
     Route: 048
  8. GLACTIV [Concomitant]
     Indication: DIABETES MELLITUS
     Route: 048
  9. NEXAVAR [Suspect]
     Indication: HEPATIC NEOPLASM MALIGNANT
     Dosage: 200 MG, BID
     Route: 048
     Dates: start: 20101201, end: 20101214
  10. MIYA BM [Concomitant]
     Indication: PROPHYLAXIS AGAINST DIARRHOEA
     Dosage: DAILY DOSE 3 DF
     Route: 048
     Dates: start: 20101201, end: 20101214
  11. GLYBURIDE [Concomitant]
     Indication: DIABETES MELLITUS
     Dosage: 1.25 MG, QD
     Route: 048
     Dates: start: 20101221
  12. QVAR 40 [Concomitant]
     Dosage: 1 DF, BID
     Route: 055

REACTIONS (4)
  - MALAISE [None]
  - DIARRHOEA [None]
  - LACUNAR INFARCTION [None]
  - DECREASED APPETITE [None]
